FAERS Safety Report 8133800-5 (Version None)
Quarter: 2012Q1

REPORT INFORMATION
  Report Type: 
  Country: None (occurrence: None)
  Receive Date: 20120213
  Receipt Date: 20120213
  Transmission Date: 20120608
  Serious: No
  Sender: FDA-Public Use
  Company Number: None

PATIENT
  Age: 28 Year
  Sex: Male
  Weight: 65.317 kg

DRUGS (1)
  1. PROPECIA [Suspect]
     Indication: ALOPECIA
     Dosage: 1.0 MG
     Route: 048
     Dates: start: 20111006, end: 20111106

REACTIONS (5)
  - VISION BLURRED [None]
  - LOSS OF LIBIDO [None]
  - FEELING ABNORMAL [None]
  - ERECTILE DYSFUNCTION [None]
  - PAIN [None]
